FAERS Safety Report 25813219 (Version 1)
Quarter: 2025Q3

REPORT INFORMATION
  Report Type: Spontaneous
  Country: CN (occurrence: CN)
  Receive Date: 20250917
  Receipt Date: 20250917
  Transmission Date: 20251021
  Serious: Yes (Other)
  Sender: PFIZER
  Company Number: CN-PFIZER INC-PV202500111384

PATIENT
  Age: 3 Week
  Sex: Male
  Weight: 3.6 kg

DRUGS (3)
  1. TYGACIL [Suspect]
     Active Substance: TIGECYCLINE
     Indication: Pneumonia
     Dosage: 1.2 MG/KG, 2X/DAY
     Route: 041
     Dates: start: 20250822, end: 20250826
  2. PIPERACILLIN AND TAZOBACTAM [Concomitant]
     Active Substance: PIPERACILLIN SODIUM\TAZOBACTAM SODIUM
     Indication: Infection
     Dosage: 0.32 G, 3X/DAY
     Route: 041
     Dates: start: 20250827, end: 20250903
  3. MEROPENEM [Concomitant]
     Active Substance: MEROPENEM
     Indication: Infection
     Dosage: 0.072 G, 3X/DAY
     Route: 041
     Dates: start: 20250822, end: 20250826

REACTIONS (6)
  - Thrombocytopenia neonatal [Recovering/Resolving]
  - Blood fibrinogen decreased [Recovering/Resolving]
  - Haemoglobin decreased [Recovering/Resolving]
  - Activated partial thromboplastin time prolonged [Recovering/Resolving]
  - Red blood cell count decreased [Recovering/Resolving]
  - Off label use [Unknown]

NARRATIVE: CASE EVENT DATE: 20250822
